FAERS Safety Report 11854267 (Version 1)
Quarter: 2015Q4

REPORT INFORMATION
  Report Type: Spontaneous
  Country: US (occurrence: US)
  Receive Date: 20151220
  Receipt Date: 20151220
  Transmission Date: 20160305
  Serious: No
  Sender: FDA-Public Use
  Company Number: US-ZYDUS-008588

PATIENT
  Age: 54 Year
  Sex: Male
  Weight: 89 kg

DRUGS (2)
  1. OMBITASVIR + PARITAPREVIR + RITONAVIR + DASABUVIR [Suspect]
     Active Substance: DASABUVIR\OMBITASVIR\PARITAPREVIR\RITONAVIR
     Indication: HEPATITIS C
     Dosage: 2PINK/2BEIGE, DAILY
     Route: 048
     Dates: start: 201502
  2. RIBAVIRIN. [Suspect]
     Active Substance: RIBAVIRIN
     Indication: HEPATITIS C
     Route: 048

REACTIONS (5)
  - Vomiting [Recovered/Resolved]
  - Stress [Unknown]
  - Mood altered [Unknown]
  - Nipple pain [Unknown]
  - Breast discharge [Unknown]

NARRATIVE: CASE EVENT DATE: 2015
